FAERS Safety Report 8469445-7 (Version None)
Quarter: 2012Q2

REPORT INFORMATION
  Report Type: 
  Country: None (occurrence: None)
  Receive Date: 20120621
  Receipt Date: 20120621
  Transmission Date: 20120825
  Serious: Yes (Other)
  Sender: FDA-Public Use
  Company Number: None

PATIENT
  Age: 63 Year
  Sex: Male
  Weight: 72.5755 kg

DRUGS (2)
  1. LISINOPRIL [Suspect]
     Indication: BLOOD PRESSURE
     Dosage: 5 MG TWICE DAILY
     Dates: start: 20110101, end: 20120612
  2. SIMVASTATIN [Suspect]
     Indication: BLOOD CHOLESTEROL
     Dosage: 20 MG ONCE DAILY NIGHT
     Dates: start: 20110101, end: 20120612

REACTIONS (7)
  - DIARRHOEA [None]
  - ASTHENIA [None]
  - PAIN [None]
  - SOMNOLENCE [None]
  - HAEMATOCHEZIA [None]
  - MEMORY IMPAIRMENT [None]
  - FATIGUE [None]
